FAERS Safety Report 9371551 (Version 1)
Quarter: 2013Q2

REPORT INFORMATION
  Report Type: Spontaneous
  Country: DE (occurrence: DE)
  Receive Date: 20130627
  Receipt Date: 20130627
  Transmission Date: 20140414
  Serious: Yes (Other)
  Sender: FDA-Public Use
  Company Number: DE-ASTELLAS-2013EU005361

PATIENT
  Sex: Female

DRUGS (2)
  1. VESIKUR [Suspect]
     Indication: BLADDER IRRITATION
     Dosage: 5 MG, UID/QD
     Route: 048
     Dates: start: 201209
  2. RIVASTIGMIN +PHARMA [Concomitant]
     Indication: DEMENTIA
     Dosage: 6 MG, UID/QD
     Route: 048
     Dates: start: 201207

REACTIONS (3)
  - Drug interaction [Unknown]
  - Dizziness [Not Recovered/Not Resolved]
  - Syncope [Not Recovered/Not Resolved]
